FAERS Safety Report 7686863-5 (Version None)
Quarter: 2011Q3

REPORT INFORMATION
  Report Type: 
  Country: None (occurrence: None)
  Receive Date: 20110816
  Receipt Date: 20110812
  Transmission Date: 20111222
  Serious: Yes (Death, Other)
  Sender: FDA-Public Use
  Company Number: GB-PFIZER INC-2011186688

PATIENT
  Age: 71 Year
  Sex: Male
  Weight: 54 kg

DRUGS (8)
  1. OLANZAPINE [Concomitant]
     Dosage: 5 MG, UNK
     Route: 048
  2. SIMVASTATIN [Concomitant]
     Dosage: 40 MG, 1X/DAY
  3. VALPROIC ACID [Concomitant]
     Dosage: 800 MG, UNK
  4. BISOPROLOL [Concomitant]
     Dosage: 1.25 MG, 1X/DAY
  5. RANITIDINE [Concomitant]
     Dosage: 300 MG, 2X/DAY
     Route: 048
  6. TRAZODONE HCL [Suspect]
     Indication: DEPRESSION
     Dosage: 187.5 MG, PER DAY
     Route: 048
  7. ACETYLSALICYLIC ACID [Concomitant]
     Dosage: 75 MG, 1X/DAY
  8. CLOPIDOGREL [Concomitant]
     Dosage: 75 MG, 1X/DAY

REACTIONS (1)
  - TOXICITY TO VARIOUS AGENTS [None]
